FAERS Safety Report 4995526-6 (Version None)
Quarter: 2006Q2

REPORT INFORMATION
  Report Type: 
  Country: None (occurrence: None)
  Receive Date: 20060504
  Receipt Date: 20060426
  Transmission Date: 20061013
  Serious: No
  Sender: FDA-Public Use
  Company Number: SUSI-2006-00098

PATIENT
  Age: 49 Year
  Sex: Female
  Weight: 54.4 kg

DRUGS (1)
  1. ADDERALL 10 [Suspect]
     Indication: ATTENTION DEFICIT/HYPERACTIVITY DISORDER
     Dosage: 30 MG, 2X/DAY:BID
     Dates: start: 20051001

REACTIONS (1)
  - LYMPHADENOPATHY [None]
